FAERS Safety Report 9576281 (Version 1)
Quarter: 2013Q4

REPORT INFORMATION
  Report Type: Spontaneous
  Country: US (occurrence: US)
  Receive Date: 20131001
  Receipt Date: 20131001
  Transmission Date: 20140711
  Serious: No
  Sender: FDA-Public Use
  Company Number: US-AMGEN-USASP2013001976

PATIENT
  Age: 51 Year
  Sex: Female
  Weight: 127 kg

DRUGS (13)
  1. ENBREL [Suspect]
     Indication: RHEUMATOID ARTHRITIS
     Dosage: 50 MG, QWK
     Route: 058
  2. COREG CR [Concomitant]
     Dosage: 20 MG, UNK
  3. AMLODIPINE [Concomitant]
     Dosage: 5 MG, UNK
  4. PREDNISONE [Concomitant]
     Dosage: 1 MG, UNK
  5. ZYRTEC [Concomitant]
     Dosage: 5 MG, UNK
  6. LIPITOR [Concomitant]
     Dosage: 20 MG, UNK
  7. PROVENTIL                          /00139501/ [Concomitant]
     Dosage: 90 MUG, UNK
  8. FLOVENT [Concomitant]
     Dosage: 44 MCG/AC, UNK
  9. ADVAIR [Concomitant]
     Dosage: 100/50 UNK
  10. PLAVIX [Concomitant]
     Dosage: 75 MG, UNK
  11. ZETIA [Concomitant]
     Dosage: 10 MG, UNK
  12. MULTIVITAMINS, PLAIN [Concomitant]
     Dosage: UNK
  13. ASPIRIN [Concomitant]
     Dosage: 81 MG, UNK

REACTIONS (1)
  - Influenza like illness [Recovering/Resolving]
